FAERS Safety Report 5764952-X (Version None)
Quarter: 2008Q2

REPORT INFORMATION
  Report Type: 
  Country: None (occurrence: None)
  Receive Date: 20080611
  Receipt Date: 20080606
  Transmission Date: 20081010
  Serious: Yes (Hospitalization, Other)
  Sender: FDA-Public Use
  Company Number: B0522752A

PATIENT
  Age: 75 Year
  Sex: Male

DRUGS (1)
  1. GLIMEPIRIDE + ROSIGLITAZONE [Suspect]
     Route: 048
     Dates: start: 20080401, end: 20080415

REACTIONS (3)
  - CARDIAC FAILURE [None]
  - DYSPNOEA [None]
  - OEDEMA [None]
